FAERS Safety Report 11885603 (Version 1)
Quarter: 2016Q1

REPORT INFORMATION
  Report Type: Spontaneous
  Country: FR (occurrence: FR)
  Receive Date: 20160104
  Receipt Date: 20160104
  Transmission Date: 20160526
  Serious: Yes (Hospitalization)
  Sender: FDA-Public Use
  Company Number: FR-PFIZER INC-2015477005

PATIENT
  Age: 74 Year
  Sex: Female

DRUGS (5)
  1. MAXILASE [Suspect]
     Active Substance: PANCRELIPASE
     Indication: COUGH
     Dosage: UNK
     Route: 048
     Dates: start: 20151014, end: 20151017
  2. HELICIDINE [Suspect]
     Active Substance: ESCARGOT
     Indication: COUGH
     Route: 048
  3. ADVIL [Suspect]
     Active Substance: IBUPROFEN
     Indication: PAIN
     Route: 048
  4. SPASFON /00934601/ [Suspect]
     Active Substance: PHLOROGLUCINOL
     Indication: PAIN
     Route: 048
  5. FENOFIBRATE. [Concomitant]
     Active Substance: FENOFIBRATE

REACTIONS (1)
  - Pancreatitis acute [Recovered/Resolved]

NARRATIVE: CASE EVENT DATE: 201510
